FAERS Safety Report 9306219 (Version 1)
Quarter: 2013Q2

REPORT INFORMATION
  Report Type: Spontaneous
  Country: JP (occurrence: JP)
  Receive Date: 20130523
  Receipt Date: 20130523
  Transmission Date: 20140414
  Serious: Yes (Other)
  Sender: FDA-Public Use
  Company Number: JP-GLAXOSMITHKLINE-B0892631A

PATIENT
  Age: 69 Year
  Sex: Male

DRUGS (3)
  1. ARRANON [Suspect]
     Route: 042
  2. ARRANON [Suspect]
     Route: 042
  3. FLUDARABINE PHOSPHATE [Suspect]

REACTIONS (2)
  - Altered state of consciousness [Unknown]
  - Diarrhoea [Unknown]
